FAERS Safety Report 4405936-3 (Version None)
Quarter: 2004Q3

REPORT INFORMATION
  Report Type: 
  Country: None (occurrence: None)
  Receive Date: 20040723
  Receipt Date: 20040211
  Transmission Date: 20050211
  Serious: No
  Sender: FDA-Public Use
  Company Number: US-GLAXOSMITHKLINE-A0497802A

PATIENT
  Age: 60 Year
  Sex: Female

DRUGS (3)
  1. AVANDIA [Suspect]
     Dosage: 4MG PER DAY
     Route: 048
     Dates: start: 20031229, end: 20040203
  2. TIAZAC [Concomitant]
  3. LISINOPRIL [Concomitant]

REACTIONS (4)
  - COUGH [None]
  - FATIGUE [None]
  - HEADACHE [None]
  - NASOPHARYNGITIS [None]
